FAERS Safety Report 7495100-6 (Version None)
Quarter: 2011Q2

REPORT INFORMATION
  Report Type: 
  Country: None (occurrence: None)
  Receive Date: 20110520
  Receipt Date: 20110510
  Transmission Date: 20111010
  Serious: Yes (Hospitalization)
  Sender: FDA-Public Use
  Company Number: DE-ELI_LILLY_AND_COMPANY-DE201105002445

PATIENT
  Sex: Female

DRUGS (2)
  1. ANALGESICS [Concomitant]
     Dosage: UNK
     Route: 065
  2. FORTEO [Suspect]
     Indication: OSTEOPOROSIS
     Dosage: UNK UNK, QD
     Route: 058
     Dates: start: 20101215

REACTIONS (1)
  - LUMBAR VERTEBRAL FRACTURE [None]
